FAERS Safety Report 9699280 (Version 1)
Quarter: 2013Q4

REPORT INFORMATION
  Report Type: Spontaneous
  Country: US (occurrence: US)
  Receive Date: 20131120
  Receipt Date: 20131120
  Transmission Date: 20140711
  Serious: No
  Sender: FDA-Public Use
  Company Number: US-GILEAD-2008-0015336

PATIENT
  Sex: Male
  Weight: 122.47 kg

DRUGS (10)
  1. LETAIRIS [Suspect]
     Indication: PULMONARY ARTERIAL HYPERTENSION
     Route: 048
     Dates: start: 20071229
  2. OXYGEN [Concomitant]
     Route: 045
  3. COZAAR [Concomitant]
     Route: 048
  4. LASIX [Concomitant]
     Route: 048
  5. GLUCOTROL [Concomitant]
     Route: 048
  6. PREDNISONE [Concomitant]
     Route: 048
  7. GLUCOPHAGE [Concomitant]
     Route: 048
  8. LANTUS [Concomitant]
     Route: 058
  9. ATENOLOL [Concomitant]
     Route: 048
  10. NOVOLOG [Concomitant]
     Route: 058

REACTIONS (1)
  - Fluid retention [None]
